FAERS Safety Report 10591444 (Version 1)
Quarter: 2014Q4

REPORT INFORMATION
  Report Type: Report from Study
  Country: TR (occurrence: TR)
  Receive Date: 20141118
  Receipt Date: 20141118
  Transmission Date: 20150529
  Serious: Yes (Other)
  Sender: FDA-Public Use
  Company Number: TR-BAXTER-2014BAX067599

PATIENT
  Age: 53 Year
  Sex: Female

DRUGS (2)
  1. TISSEEL [Suspect]
     Active Substance: FIBRINOGEN HUMAN\THROMBIN HUMAN
     Indication: INTRAOCULAR LENS IMPLANT
     Route: 031
  2. BALANCED SALT SOLUTION [Suspect]
     Active Substance: CALCIUM CHLORIDE\MAGNESIUM CHLORIDE\POTASSIUM CHLORIDE\SODIUM ACETATE\SODIUM CHLORIDE\SODIUM CITRATE
     Indication: EYE IRRIGATION
     Route: 065

REACTIONS (6)
  - Toxic anterior segment syndrome [Not Recovered/Not Resolved]
  - Eye pain [None]
  - Glare [None]
  - Pupil fixed [None]
  - Vision blurred [None]
  - Corneal oedema [None]
